FAERS Safety Report 25117091 (Version 1)
Quarter: 2025Q1

REPORT INFORMATION
  Report Type: Spontaneous
  Country: US (occurrence: US)
  Receive Date: 20250325
  Receipt Date: 20250325
  Transmission Date: 20250408
  Serious: Yes (Other)
  Sender: SPECGX
  Company Number: US-SPECGX-T202500641

PATIENT
  Age: 39 Year
  Sex: Male
  Weight: 79 kg

DRUGS (1)
  1. DEXTROAMPHETAMINE SACCHARATE, AMPHETAMINE ASPARTATE, DEXTROAMPHETAMINE [Suspect]
     Active Substance: AMPHETAMINE ASPARTATE\AMPHETAMINE SULFATE\DEXTROAMPHETAMINE SACCHARATE\DEXTROAMPHETAMINE SULFATE
     Indication: Attention deficit hyperactivity disorder
     Dosage: 15 MILLIGRAM, QD (AROUND 7AM IN THE MORNING)
     Route: 065
     Dates: start: 202502, end: 202503

REACTIONS (12)
  - Condition aggravated [Recovered/Resolved]
  - Attention deficit hyperactivity disorder [Recovered/Resolved]
  - Paranoia [Recovered/Resolved]
  - Anxiety [Recovered/Resolved]
  - Agitation [Recovered/Resolved]
  - Irritability [Recovered/Resolved]
  - Restlessness [Recovered/Resolved]
  - Therapeutic response changed [Unknown]
  - Suspected product contamination [Unknown]
  - Product substitution issue [Unknown]
  - Therapeutic response shortened [Unknown]
  - Drug ineffective [Unknown]

NARRATIVE: CASE EVENT DATE: 20250201
